FAERS Safety Report 17236339 (Version 1)
Quarter: 2020Q1

REPORT INFORMATION
  Report Type: Spontaneous
  Country: US (occurrence: US)
  Receive Date: 20200106
  Receipt Date: 20200106
  Transmission Date: 20200409
  Serious: No
  Sender: FDA-Public Use
  Company Number: US-MYLANLABS-2019M1131858

PATIENT
  Sex: Male
  Weight: 95 kg

DRUGS (1)
  1. FENTANYL TRANSDERMAL SYSTEM [Suspect]
     Active Substance: FENTANYL
     Indication: RESTLESS LEGS SYNDROME
     Dosage: 72 HOURS
     Route: 062

REACTIONS (2)
  - Product adhesion issue [Unknown]
  - Drug effective for unapproved indication [Not Recovered/Not Resolved]
